FAERS Safety Report 17048363 (Version 1)
Quarter: 2019Q4

REPORT INFORMATION
  Report Type: Spontaneous
  Country: US (occurrence: US)
  Receive Date: 20191119
  Receipt Date: 20191119
  Transmission Date: 20200122
  Serious: No
  Sender: FDA-Public Use
  Company Number: US-PFIZER INC-2019496000

PATIENT
  Age: 33 Year
  Sex: Female
  Weight: 99.79 kg

DRUGS (1)
  1. DEPO-PROVERA [Suspect]
     Active Substance: MEDROXYPROGESTERONE ACETATE
     Indication: CONTRACEPTION
     Dosage: 150 MG, UNK(150MG INJECTION ADMINISTERED INTO LEFT SIDE AROUND HIP BONE)
     Route: 030

REACTIONS (4)
  - Incorrect route of product administration [Recovered/Resolved with Sequelae]
  - Pain [Not Recovered/Not Resolved]
  - Hypoaesthesia [Not Recovered/Not Resolved]
  - Arthralgia [Not Recovered/Not Resolved]

NARRATIVE: CASE EVENT DATE: 20191023
